FAERS Safety Report 18683448 (Version 1)
Quarter: 2020Q4

REPORT INFORMATION
  Report Type: Spontaneous
  Country: AT (occurrence: AT)
  Receive Date: 20201230
  Receipt Date: 20201230
  Transmission Date: 20210114
  Serious: Yes (Other)
  Sender: FDA-Public Use
  Company Number: AT-TEVA-2020-AT-1862745

PATIENT
  Sex: Female

DRUGS (2)
  1. AMLODIBENE 5 MG - TABLETTEN [Suspect]
     Active Substance: AMLODIPINE BESYLATE
     Route: 065
  2. DIOVAN [Suspect]
     Active Substance: VALSARTAN
     Route: 065

REACTIONS (1)
  - Skin cancer [Not Recovered/Not Resolved]

NARRATIVE: CASE EVENT DATE: 2020
